FAERS Safety Report 9959738 (Version 1)
Quarter: 2014Q1

REPORT INFORMATION
  Report Type: Report from Study
  Country: US (occurrence: US)
  Receive Date: 20140305
  Receipt Date: 20140305
  Transmission Date: 20141002
  Serious: Yes (Hospitalization)
  Sender: FDA-Public Use
  Company Number: US-ABBVIE-13P-163-1105904-00

PATIENT
  Age: 53 Year
  Sex: Female

DRUGS (1)
  1. HUMIRA [Suspect]
     Indication: RHEUMATOID ARTHRITIS
     Dates: start: 2012

REACTIONS (6)
  - Pneumonia [Unknown]
  - Pain [Unknown]
  - Dizziness [Unknown]
  - Dizziness [Unknown]
  - Fatigue [Unknown]
  - Gait disturbance [Unknown]
